FAERS Safety Report 4962827-7 (Version None)
Quarter: 2006Q1

REPORT INFORMATION
  Report Type: 
  Country: None (occurrence: None)
  Receive Date: 20060331
  Receipt Date: 20060315
  Transmission Date: 20060701
  Serious: Yes (Hospitalization)
  Sender: FDA-Public Use
  Company Number: 8015638

PATIENT

DRUGS (1)
  1. KEPPRA [Suspect]

REACTIONS (1)
  - BLOOD DISORDER [None]
